FAERS Safety Report 20901353 (Version 2)
Quarter: 2022Q3

REPORT INFORMATION
  Report Type: Spontaneous
  Country: GB (occurrence: GB)
  Receive Date: 20220601
  Receipt Date: 20220720
  Transmission Date: 20221026
  Serious: Yes (Other)
  Sender: FDA-Public Use
  Company Number: GB-PFIZER INC-202200751305

PATIENT
  Age: 50 Year
  Sex: Female

DRUGS (1)
  1. RITUXIMAB [Suspect]
     Active Substance: RITUXIMAB
     Indication: Granuloma
     Dosage: UNK

REACTIONS (9)
  - Cardiotoxicity [Unknown]
  - Off label use [Unknown]
  - Palpitations [Unknown]
  - Ejection fraction decreased [Unknown]
  - Drug ineffective [Unknown]
  - Headache [Unknown]
  - Visual impairment [Unknown]
  - Asthenia [Unknown]
  - Memory impairment [Unknown]
